FAERS Safety Report 5883313-6 (Version None)
Quarter: 2008Q3

REPORT INFORMATION
  Report Type: 
  Country: None (occurrence: None)
  Receive Date: 20080915
  Receipt Date: 20080905
  Transmission Date: 20090109
  Serious: Yes (Other)
  Sender: FDA-Public Use
  Company Number: DE-JNJFOC-20080901399

PATIENT
  Age: 76 Year
  Sex: Male

DRUGS (1)
  1. LEUPROLIDE ACETATE [Suspect]
     Indication: PROSTATE CANCER
     Dosage: FOR 2 YEARS
     Route: 058

REACTIONS (1)
  - CUTANEOUS LUPUS ERYTHEMATOSUS [None]
